FAERS Safety Report 16877601 (Version 1)
Quarter: 2019Q4

REPORT INFORMATION
  Report Type: Report from Study
  Country: PL (occurrence: PL)
  Receive Date: 20191002
  Receipt Date: 20191002
  Transmission Date: 20200122
  Serious: Yes (Hospitalization)
  Sender: FDA-Public Use
  Company Number: PHHO2019PL001407

PATIENT
  Age: 84 Year
  Sex: Female
  Weight: 73 kg

DRUGS (11)
  1. VALSARTAN. [Suspect]
     Active Substance: VALSARTAN
     Indication: CARDIAC FAILURE
     Dosage: 160 MG, BID
     Route: 048
     Dates: start: 20160711
  2. BIOSOTAL [Concomitant]
     Dosage: UNK
  3. PLACEBO [Suspect]
     Active Substance: UNSPECIFIED INGREDIENT
     Indication: CARDIAC FAILURE
     Dosage: UNK
     Route: 048
     Dates: start: 20160711
  4. PRADAXA [Concomitant]
     Active Substance: DABIGATRAN ETEXILATE MESYLATE
     Indication: ATRIAL FIBRILLATION
     Dosage: 110 MG, BID
     Route: 065
  5. DIUVER [Concomitant]
     Active Substance: TORSEMIDE
     Indication: PRODUCT USED FOR UNKNOWN INDICATION
     Dosage: 20 MG, QD
     Route: 065
  6. PRIMACOR [Concomitant]
     Active Substance: MILRINONE LACTATE
     Indication: HYPERTENSION
     Dosage: 10 MG, QD
     Route: 065
  7. PRIMACOR [Concomitant]
     Active Substance: MILRINONE LACTATE
     Dosage: UNK
     Route: 065
  8. FUROSEMID [Concomitant]
     Active Substance: FUROSEMIDE
     Dosage: UNK
     Route: 065
  9. DIUVER [Concomitant]
     Active Substance: TORSEMIDE
     Dosage: UNK
     Route: 065
  10. FUROSEMID [Concomitant]
     Active Substance: FUROSEMIDE
     Indication: CARDIAC FAILURE
     Dosage: 40 MG, QD
     Route: 048
  11. BIOSOTAL [Concomitant]
     Indication: DRUG THERAPY
     Dosage: 40 MG, BID
     Route: 065

REACTIONS (1)
  - Cardiac failure chronic [Recovered/Resolved]

NARRATIVE: CASE EVENT DATE: 20181123
